FAERS Safety Report 5787514-7 (Version None)
Quarter: 2008Q2

REPORT INFORMATION
  Report Type: 
  Country: None (occurrence: None)
  Receive Date: 20080625
  Receipt Date: 20071023
  Transmission Date: 20081010
  Serious: No
  Sender: FDA-Public Use
  Company Number: US-ASTRAZENECA-2007UW24672

PATIENT
  Age: 7 Year
  Sex: Male

DRUGS (4)
  1. PULMICORT-100 [Suspect]
     Indication: RHINITIS SEASONAL
     Route: 055
  2. NASONEX [Concomitant]
  3. ZYRTEC [Concomitant]
  4. CLARITIN [Concomitant]

REACTIONS (1)
  - BLEPHAROSPASM [None]
